FAERS Safety Report 6706818 (Version 2)
Quarter: 2019Q1

REPORT INFORMATION
  Report Type: Spontaneous
  Country: GB (occurrence: GB)
  Receive Date: 20080722
  Receipt Date: 20190311
  Transmission Date: 20190418
  Serious: Yes (Other)
  Sender: FDA-Public Use
  Company Number: GB-PFIZER INC-2008059274

PATIENT
  Age: 28 Year
  Sex: Female

DRUGS (1)
  1. CHAMPIX [Suspect]
     Active Substance: VARENICLINE TARTRATE
     Indication: SMOKING CESSATION THERAPY
     Dosage: UNK
     Route: 048
     Dates: start: 20080623, end: 20080629

REACTIONS (5)
  - Aggression [Recovering/Resolving]
  - Depression [Recovering/Resolving]
  - Tearfulness [Recovering/Resolving]
  - Mood altered [Recovering/Resolving]
  - Thinking abnormal [Recovering/Resolving]
